FAERS Safety Report 5944562-1 (Version None)
Quarter: 2008Q4

REPORT INFORMATION
  Report Type: 
  Country: None (occurrence: None)
  Receive Date: 20081104
  Receipt Date: 20081024
  Transmission Date: 20090506
  Serious: Yes (Hospitalization)
  Sender: FDA-Public Use
  Company Number: GXKR2008GB10203

PATIENT
  Age: 30 Year
  Sex: Male

DRUGS (1)
  1. METHADONE HCL [Suspect]
     Dosage: 120 MG,

REACTIONS (10)
  - ANURIA [None]
  - DIALYSIS [None]
  - DRUG TOXICITY [None]
  - LOSS OF CONSCIOUSNESS [None]
  - METABOLIC ACIDOSIS [None]
  - MUSCULAR WEAKNESS [None]
  - PAIN [None]
  - PAIN IN EXTREMITY [None]
  - PERONEAL NERVE PALSY [None]
  - RHABDOMYOLYSIS [None]
